FAERS Safety Report 8235313-9 (Version None)
Quarter: 2012Q1

REPORT INFORMATION
  Report Type: 
  Country: None (occurrence: None)
  Receive Date: 20120326
  Receipt Date: 20120321
  Transmission Date: 20120608
  Serious: Yes (Death)
  Sender: FDA-Public Use
  Company Number: US-GILEAD-2012-0051750

PATIENT
  Sex: Female

DRUGS (6)
  1. LETAIRIS [Suspect]
     Indication: PULMONARY ARTERIAL HYPERTENSION
     Dosage: 10 MG, UNK
     Route: 048
     Dates: start: 20071214
  2. PENTOXIFYLLINE [Concomitant]
  3. CALCIUM + VITAMIN D [Concomitant]
  4. TRAMADOL HCL [Concomitant]
  5. VITAMIN A                          /00056001/ [Concomitant]
  6. ASPIRIN [Suspect]

REACTIONS (3)
  - DEATH [None]
  - LOWER LIMB FRACTURE [None]
  - FALL [None]
